FAERS Safety Report 11057104 (Version 2)
Quarter: 2015Q2

REPORT INFORMATION
  Report Type: Report from Study
  Country: VE (occurrence: VE)
  Receive Date: 20150422
  Receipt Date: 20150511
  Transmission Date: 20150821
  Serious: Yes (Other)
  Sender: FDA-Public Use
  Company Number: VE-ABBVIE-15K-178-1379189-00

PATIENT
  Age: 28 Year
  Sex: Female

DRUGS (2)
  1. LYRICA [Concomitant]
     Active Substance: PREGABALIN
     Indication: PAIN
  2. HUMIRA [Suspect]
     Active Substance: ADALIMUMAB
     Indication: ANKYLOSING SPONDYLITIS
     Route: 058
     Dates: start: 20140729

REACTIONS (1)
  - Tuberculin test positive [Not Recovered/Not Resolved]

NARRATIVE: CASE EVENT DATE: 201504
